FAERS Safety Report 24531019 (Version 2)
Quarter: 2024Q4

REPORT INFORMATION
  Report Type: Spontaneous
  Country: ES (occurrence: ES)
  Receive Date: 20241022
  Receipt Date: 20241128
  Transmission Date: 20250115
  Serious: Yes (Life-Threatening, Other)
  Sender: PIRAMAL
  Company Number: ES-PIRAMAL CRITICAL CARE LIMITED-2024-PPL-000782

PATIENT

DRUGS (2)
  1. SEVOFLURANE [Interacting]
     Active Substance: SEVOFLURANE
     Indication: Sedation
     Dosage: UNK
     Dates: start: 20230929, end: 20231004
  2. AVIBACTAM SODIUM\CEFTAZIDIME [Interacting]
     Active Substance: AVIBACTAM SODIUM\CEFTAZIDIME
     Indication: Pneumonia
     Dosage: UNK
     Route: 042
     Dates: start: 20230926, end: 20231008

REACTIONS (3)
  - Hypernatraemia [Recovered/Resolved]
  - Acute kidney injury [Recovered/Resolved]
  - Product use in unapproved indication [Unknown]

NARRATIVE: CASE EVENT DATE: 20231001
